FAERS Safety Report 5043832-1 (Version None)
Quarter: 2006Q3

REPORT INFORMATION
  Report Type: 
  Country: None (occurrence: None)
  Receive Date: 20060706
  Receipt Date: 20060522
  Transmission Date: 20061208
  Serious: Yes (Hospitalization)
  Sender: FDA-Public Use
  Company Number: PHHO2006AT08264

PATIENT
  Sex: Male

DRUGS (10)
  1. CLOZAPINE [Suspect]
     Indication: BIPOLAR DISORDER
     Dosage: 300 MG, UNK
     Dates: start: 20060212, end: 20060216
  2. CLOZAPINE [Suspect]
     Dosage: 400 MG, UNK
     Dates: start: 20060217, end: 20060225
  3. CLOZAPINE [Suspect]
     Dosage: 450 MG, UNK
     Dates: start: 20060226, end: 20060307
  4. CLOZAPINE [Suspect]
     Dosage: 150 MG, UNK
     Dates: start: 20060308, end: 20060309
  5. CLOZAPINE [Suspect]
     Dosage: UNK, UNK
     Dates: end: 20060211
  6. CLOZAPINE [Suspect]
     Dosage: 100MG
     Route: 048
     Dates: start: 20060314, end: 20060407
  7. LAMICTAL [Suspect]
     Dosage: 25 MG, UNK
     Dates: start: 20060221, end: 20060302
  8. LAMICTAL [Suspect]
     Dosage: 50 MG, UNK
     Dates: start: 20060303, end: 20060307
  9. TEMESTA [Concomitant]
  10. ALNA [Concomitant]

REACTIONS (5)
  - AGITATION [None]
  - DELIRIUM [None]
  - DISORIENTATION [None]
  - DRUG INTERACTION [None]
  - RASH [None]
